FAERS Safety Report 16332707 (Version 1)
Quarter: 2019Q2

REPORT INFORMATION
  Report Type: Spontaneous
  Country: DK (occurrence: DK)
  Receive Date: 20190520
  Receipt Date: 20190520
  Transmission Date: 20190711
  Serious: Yes (Hospitalization)
  Sender: FDA-Public Use
  Company Number: DK-009507513-1905DNK005492

PATIENT
  Age: 60 Year
  Sex: Male
  Weight: 130 kg

DRUGS (1)
  1. ZEPATIER [Suspect]
     Active Substance: ELBASVIR\GRAZOPREVIR
     Indication: CHRONIC HEPATITIS C
     Dosage: STRENGHT: 50 MG + 100 MG.
     Route: 048
     Dates: start: 20190225

REACTIONS (1)
  - Herpes simplex meningitis [Recovering/Resolving]

NARRATIVE: CASE EVENT DATE: 20190423
